FAERS Safety Report 16790770 (Version 1)
Quarter: 2019Q4

REPORT INFORMATION
  Report Type: Spontaneous
  Country: US (occurrence: US)
  Receive Date: 20190909
  Receipt Date: 20190909
  Transmission Date: 20200122
  Serious: No
  Sender: FDA-Public Use
  Company Number: None

PATIENT
  Age: 63 Year
  Sex: Female
  Weight: 85.5 kg

DRUGS (1)
  1. CHOLESTYRAMINE FOR ORAL SUSPENSION USP SINGLE DOSE [Suspect]
     Active Substance: CHOLESTYRAMINE
     Indication: PRODUCT USED FOR UNKNOWN INDICATION
     Dosage: ?          QUANTITY:1 PACKET;?
     Route: 048
     Dates: start: 20190906, end: 20190909

REACTIONS (4)
  - Throat irritation [None]
  - Suspected product quality issue [None]
  - Faeces discoloured [None]
  - Product substitution issue [None]

NARRATIVE: CASE EVENT DATE: 20190906
